FAERS Safety Report 7658858-9 (Version None)
Quarter: 2011Q3

REPORT INFORMATION
  Report Type: 
  Country: None (occurrence: None)
  Receive Date: 20110805
  Receipt Date: 20110722
  Transmission Date: 20111222
  Serious: Yes (Hospitalization, Disabling, Other)
  Sender: FDA-Public Use
  Company Number: US-BAYER-2011-064899

PATIENT
  Age: 43 Year
  Sex: Female
  Weight: 82 kg

DRUGS (8)
  1. SOMA [Suspect]
     Indication: PAIN
     Dosage: 350 MG, UNK
     Dates: start: 20070101
  2. ASPIRIN [Suspect]
     Dosage: 81 MG, UNK
     Dates: start: 20070101
  3. MOTRIN [Suspect]
     Indication: PAIN
     Dosage: 800 MG, TID
     Dates: start: 20070101
  4. VICODIN [Suspect]
     Indication: PAIN
     Dosage: 750 MG, UNK
     Dates: start: 20070101
  5. PREGABALIN [Suspect]
     Indication: FIBROMYALGIA
     Dosage: 75 MG, BID
     Dates: start: 20080101
  6. LISINOPRIL [Concomitant]
     Indication: BLOOD PRESSURE ABNORMAL
     Dosage: UNK
  7. XANAX [Suspect]
     Indication: SEDATIVE THERAPY
     Dosage: 10 MG, QD
     Dates: start: 20090101
  8. CELEXA [Suspect]
     Indication: DEPRESSION
     Dosage: 10 MG, UNK

REACTIONS (7)
  - GASTRIC DISORDER [None]
  - HYPOAESTHESIA [None]
  - H1N1 INFLUENZA [None]
  - ANGIOPATHY [None]
  - TRANSIENT ISCHAEMIC ATTACK [None]
  - ACCIDENT [None]
  - BLINDNESS UNILATERAL [None]
